FAERS Safety Report 7360117-9 (Version None)
Quarter: 2011Q1

REPORT INFORMATION
  Report Type: 
  Country: None (occurrence: None)
  Receive Date: 20110318
  Receipt Date: 20110309
  Transmission Date: 20110831
  Serious: Yes (Other)
  Sender: FDA-Public Use
  Company Number: US-BIOGENIDEC-2011BI006886

PATIENT
  Age: 46 Year
  Sex: Female

DRUGS (2)
  1. AVONEX [Suspect]
     Indication: MULTIPLE SCLEROSIS
     Route: 030
     Dates: start: 20050826, end: 20080101
  2. AVONEX [Suspect]
     Route: 030
     Dates: start: 20041205, end: 20050301

REACTIONS (3)
  - BREAST CANCER [None]
  - INFLUENZA LIKE ILLNESS [None]
  - MIGRAINE [None]
